FAERS Safety Report 7997574-0 (Version None)
Quarter: 2011Q4

REPORT INFORMATION
  Report Type: 
  Country: None (occurrence: None)
  Receive Date: 20111221
  Receipt Date: 20111209
  Transmission Date: 20120403
  Serious: Yes (Other)
  Sender: FDA-Public Use
  Company Number: CA-JNJFOC-20111207049

PATIENT
  Sex: Male
  Weight: 49.8 kg

DRUGS (5)
  1. REMICADE [Suspect]
     Indication: PSORIASIS
     Route: 042
     Dates: start: 20110421
  2. VENTOLIN [Concomitant]
     Route: 065
  3. REMICADE [Suspect]
     Route: 042
     Dates: start: 20111209
  4. ADVAIR DISKUS 100/50 [Concomitant]
     Route: 065
  5. CYCLOSPORINE [Concomitant]
     Route: 065

REACTIONS (2)
  - AMNESIA [None]
  - INFUSION RELATED REACTION [None]
